FAERS Safety Report 6511646-9 (Version None)
Quarter: 2009Q4

REPORT INFORMATION
  Report Type: 
  Country: None (occurrence: None)
  Receive Date: 20091222
  Receipt Date: 20090505
  Transmission Date: 20100525
  Serious: No
  Sender: FDA-Public Use
  Company Number: US-ASTRAZENECA-2009UW11391

PATIENT
  Age: 79 Year
  Sex: Female
  Weight: 77.1 kg

DRUGS (2)
  1. CRESTOR [Suspect]
     Route: 048
     Dates: start: 20090401
  2. SPIRIVA [Concomitant]

REACTIONS (1)
  - MUSCLE SPASMS [None]
